FAERS Safety Report 5826933-7 (Version None)
Quarter: 2008Q3

REPORT INFORMATION
  Report Type: 
  Country: None (occurrence: None)
  Receive Date: 20080729
  Receipt Date: 20080729
  Transmission Date: 20090109
  Serious: Yes (Other)
  Sender: FDA-Public Use
  Company Number: None

PATIENT
  Age: 33 Year
  Sex: Female
  Weight: 65.7716 kg

DRUGS (1)
  1. LEVAQUIN [Suspect]
     Dosage: BY IV BUCCAL
     Route: 002

REACTIONS (10)
  - ASTHENIA [None]
  - ERYTHEMA [None]
  - HYPOAESTHESIA [None]
  - MUSCLE DISORDER [None]
  - NERVOUS SYSTEM DISORDER [None]
  - OEDEMA PERIPHERAL [None]
  - PARAESTHESIA [None]
  - SKIN BURNING SENSATION [None]
  - SKIN DISORDER [None]
  - TENDON DISORDER [None]
